FAERS Safety Report 10525904 (Version 3)
Quarter: 2015Q1

REPORT INFORMATION
  Report Type: Spontaneous
  Country: BR (occurrence: BR)
  Receive Date: 20141017
  Receipt Date: 20150120
  Transmission Date: 20150720
  Serious: Yes (Hospitalization, Other)
  Sender: FDA-Public Use
  Company Number: BR-ELI_LILLY_AND_COMPANY-BR201410003022

PATIENT
  Sex: Female
  Weight: 58 kg

DRUGS (2)
  1. HUMULIN N [Suspect]
     Active Substance: INSULIN HUMAN
     Indication: DIABETES MELLITUS
     Dosage: 16 IU, TID
     Route: 058
     Dates: start: 2010
  2. HUMULIN R [Suspect]
     Active Substance: INSULIN HUMAN
     Indication: DIABETES MELLITUS
     Dosage: 12 IU, TID
     Route: 058

REACTIONS (7)
  - Kidney infection [Not Recovered/Not Resolved]
  - Cataract [Recovered/Resolved]
  - Blood glucose increased [Recovered/Resolved]
  - Cardiac disorder [Recovered/Resolved]
  - Hyperglycaemia [Recovered/Resolved]
  - Memory impairment [Unknown]
  - Coma [Recovered/Resolved]
